FAERS Safety Report 4533969-5 (Version None)
Quarter: 2004Q4

REPORT INFORMATION
  Report Type: 
  Country: None (occurrence: None)
  Receive Date: 20041221
  Receipt Date: 20041221
  Transmission Date: 20050328
  Serious: Yes (Other)
  Sender: FDA-Public Use
  Company Number: None

PATIENT
  Age: 70 Year
  Sex: Male
  Weight: 88 kg

DRUGS (28)
  1. LORAZEPAM [Suspect]
  2. RAMIPRIL [Concomitant]
  3. AMIODARONE HCL [Concomitant]
  4. ASPIRIN [Concomitant]
  5. CARVEDILOL [Concomitant]
  6. CLOPIDOGREL BISULFATE [Concomitant]
  7. NITROGLYCERIN [Concomitant]
  8. SIMVASTATIN [Concomitant]
  9. OMEPRAZOLE [Concomitant]
  10. ASPIRIN [Concomitant]
  11. CLINDAMYCIN PHOSPHATE [Concomitant]
  12. MEGESTROL [Concomitant]
  13. DILTIAZEM CAP, SA [Concomitant]
  14. DIGOXIN [Concomitant]
  15. CARVEDILOL TAB [Concomitant]
  16. OXYCODONE TAB [Concomitant]
  17. FOSINOPRIL TAB [Concomitant]
  18. OMEPRAZOLE CAP, SA [Concomitant]
  19. FLUNISOLIDE (AEROBID) INHALANT [Concomitant]
  20. BACITRACIN-POLYMIXIN B OINT [Concomitant]
  21. ALBUTEROL/IPRATROPIUM MDI [Concomitant]
  22. LORAZEPAM [Concomitant]
  23. ACETAMINOPHEN AND HYDROCODONE BITARTRATE [Concomitant]
  24. RAMIPRIL CAP [Concomitant]
  25. SIMVASTATIN TAB [Concomitant]
  26. BACITRACIN / POLYMIXIN OINT [Concomitant]
  27. ALBUTEROL/IPRATROPIUM [Concomitant]
  28. ACETAMINOPHEN AND HYDROCODONE BITARTRATE [Concomitant]

REACTIONS (1)
  - LETHARGY [None]
